FAERS Safety Report 6722800-5 (Version None)
Quarter: 2010Q2

REPORT INFORMATION
  Report Type: 
  Country: None (occurrence: None)
  Receive Date: 20100512
  Receipt Date: 20100512
  Transmission Date: 20101027
  Serious: Yes (Hospitalization)
  Sender: FDA-Public Use
  Company Number: None

PATIENT
  Age: 48 Year
  Sex: Male
  Weight: 104.3273 kg

DRUGS (7)
  1. LUNESTA [Suspect]
     Indication: INSOMNIA
     Dosage: 2MG ONE AT BEDTIME PO
     Route: 048
     Dates: end: 20100506
  2. LUNESTA [Suspect]
     Indication: PAIN
     Dosage: 2MG ONE AT BEDTIME PO
     Route: 048
     Dates: end: 20100506
  3. CYMBALTA [Suspect]
     Indication: DEPRESSION
     Dosage: 60MG ONE BID PO
     Route: 048
     Dates: start: 20080101, end: 20100506
  4. LAMICTAL [Concomitant]
  5. LYRICA [Concomitant]
  6. SIMVASTATIN [Concomitant]
  7. VOLTAREN [Concomitant]

REACTIONS (2)
  - DECREASED APPETITE [None]
  - SEROTONIN SYNDROME [None]
